FAERS Safety Report 19595826 (Version 2)
Quarter: 2021Q4

REPORT INFORMATION
  Report Type: Other
  Country: US (occurrence: US)
  Receive Date: 20210722
  Receipt Date: 20211024
  Transmission Date: 20220303
  Serious: Yes (Hospitalization, Other)
  Sender: FDA-Public Use
  Company Number: US-COVIS PHARMA GMBH-2021COV23344

PATIENT
  Sex: Female

DRUGS (1)
  1. MAKENA [Suspect]
     Active Substance: HYDROXYPROGESTERONE CAPROATE
     Indication: Foetal exposure during pregnancy
     Dosage: 275MG/1.1ML
     Route: 064
     Dates: start: 20210212, end: 20210607

REACTIONS (1)
  - Premature baby [Recovered/Resolved]
